FAERS Safety Report 16123909 (Version 4)
Quarter: 2019Q4

REPORT INFORMATION
  Report Type: Report from Study
  Country: US (occurrence: US)
  Receive Date: 20190327
  Receipt Date: 20191218
  Transmission Date: 20200122
  Serious: Yes (Death, Hospitalization)
  Sender: FDA-Public Use
  Company Number: US-ACTELION-A-US2019-188049

PATIENT
  Age: 62 Year
  Sex: Female

DRUGS (13)
  1. HYDRALAZINE [Concomitant]
     Active Substance: HYDRALAZINE HYDROCHLORIDE
     Dosage: 25 MG, BID
  2. KLOR-CON [Concomitant]
     Active Substance: POTASSIUM CHLORIDE
     Dosage: 20 MG, QD
  3. FUROSEMIDE. [Concomitant]
     Active Substance: FUROSEMIDE
     Dosage: 80 MG, BID
     Dates: start: 2018
  4. PROTONIX [Concomitant]
     Active Substance: PANTOPRAZOLE SODIUM
     Dosage: 20 MG, BID
  5. OPSUMIT [Suspect]
     Active Substance: MACITENTAN
     Indication: PULMONARY ARTERIAL HYPERTENSION
     Dosage: 10 MG, QD
     Route: 048
     Dates: start: 20190213, end: 20190416
  6. OXYGEN. [Concomitant]
     Active Substance: OXYGEN
  7. CELLCEPT [Concomitant]
     Active Substance: MYCOPHENOLATE MOFETIL\MYCOPHENOLATE MOFETIL HYDROCHLORIDE
     Dosage: 15 MG IN AM, 1000 MG IN PM
     Dates: start: 201808
  8. LIPITOR [Concomitant]
     Active Substance: ATORVASTATIN CALCIUM
     Dosage: 20 MG, QD
  9. CALCIUM + VITAMIN D [Concomitant]
     Active Substance: CALCIUM\VITAMIN D
     Dosage: 1000 MG, BID
     Dates: start: 2018
  10. PROAIR HFA [Concomitant]
     Active Substance: ALBUTEROL SULFATE
     Dosage: 90 MG, 2 PUFFS Q 4 HRS AS NEEDED
  11. VELETRI [Concomitant]
     Active Substance: EPOPROSTENOL
     Indication: PULMONARY ARTERIAL HYPERTENSION
     Dosage: UNK
     Route: 042
     Dates: start: 20190414
  12. COREG [Concomitant]
     Active Substance: CARVEDILOL
     Dosage: 12.5 MG, BID
  13. FLOVENT [Concomitant]
     Active Substance: FLUTICASONE PROPIONATE
     Dosage: 220 MG, BID

REACTIONS (23)
  - Pyrexia [Unknown]
  - Myalgia [Unknown]
  - Pulmonary hypertension [Fatal]
  - Cough [Unknown]
  - Right ventricular dilatation [Fatal]
  - Pericardial effusion [Fatal]
  - Interstitial lung disease [Fatal]
  - Swelling [Recovered/Resolved]
  - Dyspnoea exertional [Unknown]
  - Headache [Unknown]
  - Acute respiratory failure [Not Recovered/Not Resolved]
  - Hypoxia [Fatal]
  - Dyspnoea [Fatal]
  - Productive cough [Unknown]
  - Pain [Unknown]
  - Movement disorder [Recovering/Resolving]
  - Transplant evaluation [Unknown]
  - Chronic respiratory failure [Unknown]
  - Oedema peripheral [Not Recovered/Not Resolved]
  - Cardiac arrest [Fatal]
  - Right atrial enlargement [Fatal]
  - Pulmonary fibrosis [Fatal]
  - Condition aggravated [Fatal]

NARRATIVE: CASE EVENT DATE: 2019
